FAERS Safety Report 4718410-1 (Version None)
Quarter: 2005Q3

REPORT INFORMATION
  Report Type: 
  Country: None (occurrence: None)
  Receive Date: 20050720
  Receipt Date: 20041210
  Transmission Date: 20060218
  Serious: Yes (Hospitalization)
  Sender: FDA-Public Use
  Company Number: US-MERCK-0412USA01377

PATIENT
  Age: 80 Year
  Sex: Female
  Weight: 73 kg

DRUGS (8)
  1. VIOXX [Suspect]
     Route: 048
     Dates: start: 20000501
  2. NORVASC [Concomitant]
     Route: 065
  3. LORAZEPAM [Concomitant]
     Route: 065
  4. PREMARIN [Concomitant]
     Route: 065
  5. ASPIRIN [Concomitant]
     Route: 065
  6. LEVOXYL [Concomitant]
     Route: 065
  7. CHOLESTIN (POLICOSANOL) [Concomitant]
     Route: 065
  8. ATENOLOL [Concomitant]
     Route: 065

REACTIONS (5)
  - CARDIAC FAILURE CONGESTIVE [None]
  - CORONARY ARTERY DISEASE [None]
  - HEPATITIS ACUTE [None]
  - MYOCARDIAL INFARCTION [None]
  - SINUS TACHYCARDIA [None]
